FAERS Safety Report 18285991 (Version 1)
Quarter: 2020Q3

REPORT INFORMATION
  Report Type: Spontaneous
  Country: GB (occurrence: GB)
  Receive Date: 20200919
  Receipt Date: 20200919
  Transmission Date: 20201103
  Serious: Yes (Other)
  Sender: FDA-Public Use
  Company Number: GB-TEVA-2020-GB-1828187

PATIENT
  Age: 27 Year
  Sex: Female
  Weight: 44.85 kg

DRUGS (5)
  1. CLARITHROMYCIN. [Suspect]
     Active Substance: CLARITHROMYCIN
     Indication: NIPPLE INFECTION
     Dosage: 1000MG
     Route: 048
     Dates: start: 20200811, end: 20200817
  2. CETIRIZINE DIHYDROCHLORIDE [Concomitant]
     Active Substance: CETIRIZINE HYDROCHLORIDE
     Dosage: UP TO 4 PER DAY IF SWELLING,10MG
  3. PASSIFLORA [Concomitant]
  4. FERROUS SULFATE. [Concomitant]
     Active Substance: FERROUS SULFATE
     Dosage: 200MG
  5. PARACETAMOL [Concomitant]
     Active Substance: ACETAMINOPHEN

REACTIONS (4)
  - Tongue discolouration [Unknown]
  - Oral candidiasis [Not Recovered/Not Resolved]
  - Paraesthesia oral [Recovering/Resolving]
  - Tongue discomfort [Unknown]

NARRATIVE: CASE EVENT DATE: 20200817
